FAERS Safety Report 23846542 (Version 2)
Quarter: 2024Q2

REPORT INFORMATION
  Report Type: Spontaneous
  Country: CA (occurrence: CA)
  Receive Date: 20240513
  Receipt Date: 20240611
  Transmission Date: 20240716
  Serious: Yes (Other)
  Sender: FDA-Public Use
  Company Number: CA-TAKEDA-2024TUS026166

PATIENT
  Age: 66 Year
  Sex: Female
  Weight: 94 kg

DRUGS (3)
  1. HUMAN IMMUNOGLOBULIN G [Suspect]
     Active Substance: HUMAN IMMUNOGLOBULIN G
     Indication: Product used for unknown indication
     Dosage: 30 GRAM
     Route: 065
  2. HUMAN IMMUNOGLOBULIN G [Suspect]
     Active Substance: HUMAN IMMUNOGLOBULIN G
     Dosage: 25 GRAM, MONTHLY
     Route: 065
     Dates: start: 20230710, end: 20230710
  3. CUVITRU [Suspect]
     Active Substance: HUMAN IMMUNOGLOBULIN G
     Indication: Product used for unknown indication
     Dosage: UNK
     Route: 065

REACTIONS (9)
  - Febrile nonhaemolytic transfusion reaction [Recovered/Resolved]
  - Feeling cold [Recovered/Resolved]
  - Chest discomfort [Recovered/Resolved]
  - Chills [Recovered/Resolved]
  - Hypertension [Recovered/Resolved]
  - Pyrexia [Recovered/Resolved]
  - Haptoglobin abnormal [Unknown]
  - Haemoglobin abnormal [Recovered/Resolved]
  - Blood lactate dehydrogenase decreased [Recovered/Resolved]

NARRATIVE: CASE EVENT DATE: 20230710
